FAERS Safety Report 14936319 (Version 1)
Quarter: 2018Q2

REPORT INFORMATION
  Report Type: Spontaneous
  Country: TW (occurrence: TW)
  Receive Date: 20180524
  Receipt Date: 20180524
  Transmission Date: 20180711
  Serious: Yes (Hospitalization, Other)
  Sender: FDA-Public Use
  Company Number: TW-ABBVIE-18K-153-2363390-00

PATIENT
  Age: 68 Year
  Sex: Female

DRUGS (2)
  1. ADALIMUMAB [Suspect]
     Active Substance: ADALIMUMAB
     Indication: RHEUMATOID ARTHRITIS
     Route: 058
     Dates: start: 20120830, end: 20180418
  2. MTX [Concomitant]
     Active Substance: METHOTREXATE SODIUM
     Indication: PRODUCT USED FOR UNKNOWN INDICATION

REACTIONS (27)
  - Gait inability [Unknown]
  - Hepatic calcification [Unknown]
  - Decreased appetite [Unknown]
  - Bacteriuria [Unknown]
  - Dizziness [Unknown]
  - Cardiomegaly [Unknown]
  - Scoliosis [Unknown]
  - Urine ketone body [Unknown]
  - Dysstasia [Unknown]
  - Hepatic lesion [Unknown]
  - Cholelithiasis [Unknown]
  - Protein urine present [Unknown]
  - Hypoaesthesia [Unknown]
  - Pyuria [Unknown]
  - Nephrolithiasis [Unknown]
  - Pericardial effusion [Unknown]
  - Hepatic steatosis [Unknown]
  - Pulmonary hypertension [Unknown]
  - Chills [Unknown]
  - Oedema peripheral [Unknown]
  - Paraplegia [Unknown]
  - Back pain [Unknown]
  - Cardiac murmur [Unknown]
  - Sepsis [Not Recovered/Not Resolved]
  - Muscular weakness [Unknown]
  - Hyperhidrosis [Unknown]
  - Lung infiltration [Unknown]

NARRATIVE: CASE EVENT DATE: 20180516
